FAERS Safety Report 4582303-3 (Version None)
Quarter: 2005Q1

REPORT INFORMATION
  Report Type: 
  Country: None (occurrence: None)
  Receive Date: 20050214
  Receipt Date: 20050131
  Transmission Date: 20050727
  Serious: Yes (Other)
  Sender: FDA-Public Use
  Company Number: US-AMGEN-US110773

PATIENT
  Sex: Male
  Weight: 126.7 kg

DRUGS (2)
  1. ENBREL [Suspect]
     Indication: PSORIASIS
     Route: 058
     Dates: start: 20041030
  2. ULTRAVATE [Concomitant]
     Route: 061

REACTIONS (1)
  - ALANINE AMINOTRANSFERASE INCREASED [None]
